FAERS Safety Report 23303882 (Version 15)
Quarter: 2025Q2

REPORT INFORMATION
  Report Type: Spontaneous
  Country: US (occurrence: US)
  Receive Date: 20231215
  Receipt Date: 20250604
  Transmission Date: 20250716
  Serious: Yes (Other)
  Sender: DAIICHI
  Company Number: US-DAIICHI SANKYO, INC.-DSU-2023-151026AA

PATIENT
  Sex: Male

DRUGS (4)
  1. TURALIO [Suspect]
     Active Substance: PEXIDARTINIB HYDROCHLORIDE
     Indication: Giant cell tumour of tendon sheath
     Dosage: 250 MG, BID
     Route: 048
     Dates: start: 20231113
  2. TURALIO [Suspect]
     Active Substance: PEXIDARTINIB HYDROCHLORIDE
     Indication: Synovitis
     Dosage: 125 MG, BID (1 CAPSULE IN THE MORNING AND 1 CAPSULE IN THE EVENING)
     Route: 048
     Dates: start: 20231221, end: 20240119
  3. TURALIO [Suspect]
     Active Substance: PEXIDARTINIB HYDROCHLORIDE
     Dosage: 125 MG, BID
     Route: 048
     Dates: start: 20240423, end: 202408
  4. TURALIO [Suspect]
     Active Substance: PEXIDARTINIB HYDROCHLORIDE
     Dosage: 125 MG, BID
     Route: 048
     Dates: start: 20240809

REACTIONS (18)
  - Renal impairment [Not Recovered/Not Resolved]
  - Energy increased [Not Recovered/Not Resolved]
  - Therapeutic response unexpected [Not Recovered/Not Resolved]
  - Blood glucose increased [Not Recovered/Not Resolved]
  - Blood glucose increased [Unknown]
  - Blood glucose increased [Not Recovered/Not Resolved]
  - Chest discomfort [Recovered/Resolved]
  - Herpes zoster [Not Recovered/Not Resolved]
  - Tooth disorder [Not Recovered/Not Resolved]
  - Erythema [Recovered/Resolved]
  - Hypertension [Not Recovered/Not Resolved]
  - Hypertension [Not Recovered/Not Resolved]
  - Swelling face [Recovered/Resolved]
  - Periorbital swelling [Unknown]
  - Fatigue [Not Recovered/Not Resolved]
  - Rash [Not Recovered/Not Resolved]
  - Product dose omission issue [Not Recovered/Not Resolved]
  - Incorrect product administration duration [Unknown]

NARRATIVE: CASE EVENT DATE: 20230101
